FAERS Safety Report 26170644 (Version 1)
Quarter: 2025Q4

REPORT INFORMATION
  Report Type: Spontaneous
  Country: US (occurrence: US)
  Receive Date: 20251217
  Receipt Date: 20251217
  Transmission Date: 20260118
  Serious: Yes (Hospitalization)
  Sender: DR REDDYS
  Company Number: None

PATIENT
  Age: 82 Year
  Sex: Female

DRUGS (2)
  1. GEMCITABINE [Suspect]
     Active Substance: GEMCITABINE
     Indication: T-cell lymphoma
  2. NIFEDIPINE [Concomitant]
     Active Substance: NIFEDIPINE
     Indication: Product used for unknown indication

REACTIONS (6)
  - Capillary leak syndrome [Recovering/Resolving]
  - Anaemia [Recovering/Resolving]
  - Erysipelas [Recovering/Resolving]
  - Acute kidney injury [Recovering/Resolving]
  - Cardiac failure acute [Recovering/Resolving]
  - Atrial flutter [Recovering/Resolving]
